FAERS Safety Report 22865803 (Version 3)
Quarter: 2023Q4

REPORT INFORMATION
  Report Type: Report from Study
  Country: US (occurrence: US)
  Receive Date: 20230825
  Receipt Date: 20231207
  Transmission Date: 20240110
  Serious: Yes (Life-Threatening, Hospitalization, Other)
  Sender: FDA-Public Use
  Company Number: US-002147023-NVSC2023US184221

PATIENT
  Sex: Male

DRUGS (3)
  1. ENTRESTO [Suspect]
     Active Substance: SACUBITRIL\VALSARTAN
     Indication: Product used for unknown indication
     Dosage: SACUBITRIL 49 MG/VALSARTAN 51 MG, BID
     Route: 048
  2. CARVEDILOL [Suspect]
     Active Substance: CARVEDILOL
     Indication: Product used for unknown indication
     Dosage: UNK
     Route: 065
  3. FARXIGA [Suspect]
     Active Substance: DAPAGLIFLOZIN PROPANEDIOL
     Indication: Product used for unknown indication
     Dosage: UNK
     Route: 065

REACTIONS (13)
  - Fear of death [Unknown]
  - Staphylococcal infection [Unknown]
  - Cardiac arrest [Unknown]
  - Type 2 diabetes mellitus [Unknown]
  - Ejection fraction decreased [Unknown]
  - Renal impairment [Unknown]
  - Chronic kidney disease [Unknown]
  - Weight decreased [Unknown]
  - Peripheral swelling [Unknown]
  - Amnesia [Unknown]
  - Cardiac output decreased [Unknown]
  - Hypotension [Unknown]
  - Glomerular filtration rate increased [Unknown]
